FAERS Safety Report 4994334-X (Version None)
Quarter: 2006Q2

REPORT INFORMATION
  Report Type: 
  Country: None (occurrence: None)
  Receive Date: 20060505
  Receipt Date: 20060202
  Transmission Date: 20061013
  Serious: No
  Sender: FDA-Public Use
  Company Number: 2006UW01871

PATIENT
  Age: 60 Year

DRUGS (1)
  1. ATACAND [Suspect]
     Route: 048

REACTIONS (2)
  - DIZZINESS [None]
  - TINNITUS [None]
